FAERS Safety Report 4805914-6 (Version None)
Quarter: 2005Q4

REPORT INFORMATION
  Report Type: 
  Country: None (occurrence: None)
  Receive Date: 20051019
  Receipt Date: 20051012
  Transmission Date: 20060501
  Serious: Yes (Hospitalization)
  Sender: FDA-Public Use
  Company Number: THQ2005A00881

PATIENT
  Age: 48 Year
  Sex: Female

DRUGS (2)
  1. LEUPROLIDE ACETATE [Suspect]
     Indication: ENDOMETRIAL DISORDER
     Dosage: 3.75 MG (3.75 MG, 2 INJECTIONS APPROXIMATELY 2 WEEKS APART) SUBCUTANEOUS
     Route: 058
     Dates: start: 20050812
  2. BENDROFLUAZIDE (BENDROFLUMETHIAZIDE) [Suspect]
     Indication: HYPERTENSION
     Dosage: 2.5 MG (2.5 MG, 1 IN 1 D) PER ORAL
     Route: 048
     Dates: start: 20050812, end: 20050905

REACTIONS (4)
  - ACCIDENTAL OVERDOSE [None]
  - BLOOD CHLORIDE DECREASED [None]
  - BLOOD SODIUM DECREASED [None]
  - MEDICATION ERROR [None]
